FAERS Safety Report 6061449-7 (Version None)
Quarter: 2009Q1

REPORT INFORMATION
  Report Type: 
  Country: None (occurrence: None)
  Receive Date: 20090129
  Receipt Date: 20090129
  Transmission Date: 20090719
  Serious: Yes (Hospitalization)
  Sender: FDA-Public Use
  Company Number: None

PATIENT
  Age: 66 Year
  Sex: Female
  Weight: 70.7611 kg

DRUGS (1)
  1. VERSED [Suspect]
     Indication: COLONOSCOPY
     Dates: start: 20090119, end: 20090119

REACTIONS (1)
  - DRUG EFFECT PROLONGED [None]
